FAERS Safety Report 5039681-0 (Version None)
Quarter: 2006Q2

REPORT INFORMATION
  Report Type: 
  Country: None (occurrence: None)
  Receive Date: 20060629
  Receipt Date: 20060530
  Transmission Date: 20061013
  Serious: Yes (Other)
  Sender: FDA-Public Use
  Company Number: US-MERCK-0605USA05114

PATIENT
  Age: 69 Year
  Sex: Male

DRUGS (1)
  1. PRINIVIL [Suspect]
     Route: 048

REACTIONS (6)
  - CEREBROVASCULAR ACCIDENT [None]
  - HEMIPLEGIA [None]
  - HIP FRACTURE [None]
  - INTERVERTEBRAL DISC PROTRUSION [None]
  - SPINAL COMPRESSION FRACTURE [None]
  - TRANSIENT ISCHAEMIC ATTACK [None]
